FAERS Safety Report 20642709 (Version 1)
Quarter: 2022Q1

REPORT INFORMATION
  Report Type: Spontaneous
  Country: AU (occurrence: None)
  Receive Date: 20220328
  Receipt Date: 20220328
  Transmission Date: 20220424
  Serious: Yes (Hospitalization, Other)
  Sender: FDA-Public Use
  Company Number: AU-MICRO LABS LIMITED-ML2022-01073

PATIENT
  Age: 55 Year
  Sex: Male
  Weight: 125 kg

DRUGS (12)
  1. SIMVASTATIN [Suspect]
     Active Substance: SIMVASTATIN
  2. FENOFIBRIC ACID [Suspect]
     Active Substance: FENOFIBRIC ACID
  3. POTASSIUM [Suspect]
     Active Substance: POTASSIUM
     Dosage: 0.9 MMOL/KG
     Route: 048
  4. NICORANDIL [Suspect]
     Active Substance: NICORANDIL
  5. TEMAZEPAM [Suspect]
     Active Substance: TEMAZEPAM
  6. ASPIRIN [Suspect]
     Active Substance: ASPIRIN
  7. OMEPRAZOLE [Suspect]
     Active Substance: OMEPRAZOLE
  8. BISOPROLOL [Suspect]
     Active Substance: BISOPROLOL
  9. FUROSEMIDE [Suspect]
     Active Substance: FUROSEMIDE
  10. SERTRALINE [Suspect]
     Active Substance: SERTRALINE HYDROCHLORIDE
  11. ISOSORBIDE MONONITRATE [Suspect]
     Active Substance: ISOSORBIDE MONONITRATE
  12. RAMIPRIL [Suspect]
     Active Substance: RAMIPRIL

REACTIONS (3)
  - Toxicity to various agents [Unknown]
  - Gastrointestinal toxicity [Unknown]
  - Overdose [Unknown]
